FAERS Safety Report 6337111-X (Version None)
Quarter: 2009Q3

REPORT INFORMATION
  Report Type: 
  Country: None (occurrence: None)
  Receive Date: 20090831
  Receipt Date: 20090819
  Transmission Date: 20100115
  Serious: Yes (Other)
  Sender: FDA-Public Use
  Company Number: 2009AL005464

PATIENT
  Sex: Female

DRUGS (3)
  1. OXYCODONE HCL [Suspect]
     Dosage: PO
     Route: 048
  2. OXYCODONE+ ACETAMINOPHEN CAPSULES [Concomitant]
  3. ACETAMINOPHEN CAPSULES [Concomitant]

REACTIONS (1)
  - DRUG DEPENDENCE [None]
